FAERS Safety Report 22166457 (Version 1)
Quarter: 2023Q2

REPORT INFORMATION
  Report Type: Spontaneous
  Country: US (occurrence: US)
  Receive Date: 20230403
  Receipt Date: 20230403
  Transmission Date: 20230722
  Serious: Yes (Death, Life-Threatening, Hospitalization, Other)
  Sender: FDA-Public Use
  Company Number: US-HORIZON THERAPEUTICS-HZN-2023-002482

PATIENT

DRUGS (1)
  1. PREDNISONE [Suspect]
     Active Substance: PREDNISONE
     Indication: Gouty arthritis
     Dosage: UNK (FIRST DOSE)
     Route: 065

REACTIONS (17)
  - Ischaemia [Fatal]
  - Gastrointestinal mucormycosis [Fatal]
  - Disseminated mucormycosis [Fatal]
  - Ischaemic hepatitis [Fatal]
  - Encephalopathy [Fatal]
  - Pulseless electrical activity [Fatal]
  - Colitis [Fatal]
  - Septic shock [Fatal]
  - Renal failure [Fatal]
  - Mucormycosis [Fatal]
  - Cardiac arrest [Fatal]
  - Acute abdomen [Fatal]
  - Multiple organ dysfunction syndrome [Fatal]
  - Candida infection [Fatal]
  - Cardiogenic shock [Fatal]
  - Cardiac failure acute [Fatal]
  - Pancreatitis acute [Fatal]
